FAERS Safety Report 9925183 (Version 1)
Quarter: 2014Q1

REPORT INFORMATION
  Report Type: Spontaneous
  Country: US (occurrence: None)
  Receive Date: 20140225
  Receipt Date: 20140225
  Transmission Date: 20141002
  Serious: Yes (Other)
  Sender: FDA-Public Use
  Company Number: None

PATIENT
  Age: 74 Year
  Sex: Male
  Weight: 95 kg

DRUGS (9)
  1. TBO-FILGRASTIM [Suspect]
     Indication: FEBRILE NEUTROPENIA
     Route: 058
     Dates: start: 20140113, end: 20140122
  2. ONDANSETRON [Concomitant]
  3. CYCLOSPORINE [Concomitant]
  4. CITALOPRAM [Concomitant]
  5. LEVOFLOXACIN [Concomitant]
  6. MEGESTROL [Concomitant]
  7. TAMSULOSIN [Concomitant]
  8. VANCOMYCIN [Concomitant]
  9. KCL [Concomitant]

REACTIONS (3)
  - Neutrophil count decreased [None]
  - Erythema [None]
  - Skin disorder [None]
